FAERS Safety Report 4551333-X (Version None)
Quarter: 2005Q1

REPORT INFORMATION
  Report Type: 
  Country: None (occurrence: None)
  Receive Date: 20050110
  Receipt Date: 20040630
  Transmission Date: 20050727
  Serious: Yes (Death)
  Sender: FDA-Public Use
  Company Number: J081-231-2711

PATIENT
  Age: 89 Year
  Sex: Female
  Weight: 44.5 kg

DRUGS (9)
  1. DONEPEZIL HCL [Suspect]
     Indication: DEMENTIA ALZHEIMER'S TYPE
     Dosage: SEE IMAGE
     Route: 048
     Dates: start: 20030226, end: 20030311
  2. DONEPEZIL HCL [Suspect]
     Indication: DEMENTIA ALZHEIMER'S TYPE
     Dosage: SEE IMAGE
     Route: 048
     Dates: start: 20030312, end: 20030316
  3. DONEPEZIL HCL [Suspect]
     Indication: DEMENTIA ALZHEIMER'S TYPE
     Dosage: PLACEBO 1 IN 1 D ORAL
     Route: 048
     Dates: start: 20030129, end: 20030225
  4. BUFFERIN [Suspect]
     Indication: ARRHYTHMIA
     Dosage: 81 MG 1 IN 1 D ORAL
     Route: 048
     Dates: end: 20021022
  5. BUFFERIN [Suspect]
     Indication: ARRHYTHMIA
     Dosage: 81 MG 1 IN 1 D ORAL
     Route: 048
     Dates: start: 20021022, end: 20030316
  6. DIGOXIN [Suspect]
     Indication: ARRHYTHMIA
     Dosage: 0.125  MG 1 IN 1 D ORAL
     Route: 048
     Dates: start: 20030129, end: 20030316
  7. BUP-4 (PROPIVERINE HYDROCHLORIDE) [Concomitant]
  8. LENDORMIN D (BROTIZOLAM) [Concomitant]
  9. FLUITRAN(TRICHLORMETHIAZIDE) [Concomitant]

REACTIONS (8)
  - BLOOD PRESSURE IMMEASURABLE [None]
  - CARDIAC ARREST [None]
  - CARDIOMEGALY [None]
  - CEREBRAL ARTERY EMBOLISM [None]
  - CEREBRAL HAEMORRHAGE [None]
  - HYPERTENSION [None]
  - RESPIRATORY ARREST [None]
  - VENTRICULAR FIBRILLATION [None]
